FAERS Safety Report 17842552 (Version 1)
Quarter: 2020Q2

REPORT INFORMATION
  Report Type: Report from Study
  Country: MX (occurrence: MX)
  Receive Date: 20200529
  Receipt Date: 20200529
  Transmission Date: 20200714
  Serious: Yes (Other)
  Sender: FDA-Public Use
  Company Number: NVSC2020MX148446

PATIENT
  Age: 100 Year
  Sex: Female
  Weight: 35 kg

DRUGS (1)
  1. ENTRESTO [Suspect]
     Active Substance: SACUBITRIL\VALSARTAN
     Indication: CARDIAC FAILURE CONGESTIVE
     Dosage: 0.25 DF, QD
     Route: 065

REACTIONS (5)
  - Delirium [Unknown]
  - Wrong technique in product usage process [Unknown]
  - Prescribed underdose [Unknown]
  - Product prescribing error [Unknown]
  - Hypotension [Unknown]

NARRATIVE: CASE EVENT DATE: 201912
